FAERS Safety Report 7653338-9 (Version None)
Quarter: 2011Q3

REPORT INFORMATION
  Report Type: 
  Country: None (occurrence: None)
  Receive Date: 20110803
  Receipt Date: 20110729
  Transmission Date: 20111222
  Serious: Yes (Other)
  Sender: FDA-Public Use
  Company Number: US-PFIZER INC-2011173611

PATIENT
  Sex: Female
  Weight: 90.703 kg

DRUGS (2)
  1. CHANTIX [Suspect]
     Dosage: UNK
     Route: 048
     Dates: start: 20101001, end: 20110101
  2. CHANTIX [Suspect]
     Indication: SMOKING CESSATION THERAPY
     Dosage: UNK
     Route: 048
     Dates: start: 20080101

REACTIONS (6)
  - DEPRESSION [None]
  - ANXIETY [None]
  - RENAL DISORDER [None]
  - SWELLING [None]
  - SUICIDAL IDEATION [None]
  - PALPITATIONS [None]
